FAERS Safety Report 8557768-2 (Version None)
Quarter: 2012Q3

REPORT INFORMATION
  Report Type: 
  Country: None (occurrence: None)
  Receive Date: 20120801
  Receipt Date: 20120726
  Transmission Date: 20120928
  Serious: Yes (Hospitalization, Other)
  Sender: FDA-Public Use
  Company Number: DE-ABBOTT-12P-062-0961579-00

PATIENT
  Age: 47 Year
  Sex: Male
  Weight: 113 kg

DRUGS (1)
  1. ZEMPLAR [Suspect]
     Indication: HYPERPARATHYROIDISM SECONDARY
     Dosage: 10 MCG PER WEEK
     Route: 042
     Dates: start: 20110225

REACTIONS (2)
  - CATHETERISATION CARDIAC [None]
  - THYROID NEOPLASM [None]
